FAERS Safety Report 6328018-2 (Version None)
Quarter: 2009Q3

REPORT INFORMATION
  Report Type: 
  Country: None (occurrence: None)
  Receive Date: 20090825
  Receipt Date: 20080909
  Transmission Date: 20100115
  Serious: No
  Sender: FDA-Public Use
  Company Number: US-ABBOTT-08P-163-0475066-00

PATIENT
  Sex: Female
  Weight: 43.13 kg

DRUGS (4)
  1. SYNTHROID [Suspect]
     Indication: HYPOTHYROIDISM
     Route: 048
  2. ERGOCALCIFEROL [Concomitant]
     Indication: DRUG USE FOR UNKNOWN INDICATION
     Route: 048
  3. EVESTA [Concomitant]
     Indication: BONE DISORDER
     Route: 048
  4. UNKNOWN BLOOD PRESSURE MEDICATION [Concomitant]
     Indication: BLOOD PRESSURE
     Route: 048

REACTIONS (2)
  - DRUG INEFFECTIVE [None]
  - SINUS CONGESTION [None]
